FAERS Safety Report 8977824 (Version 1)
Quarter: 2012Q4

REPORT INFORMATION
  Report Type: 
  Country: US (occurrence: US)
  Receive Date: 20121219
  Receipt Date: 20121219
  Transmission Date: 20130627
  Serious: Yes (Hospitalization, Other)
  Sender: FDA-Public Use
  Company Number: US-EISAI INC-E3810-06146-SPO-US

PATIENT
  Sex: Male
  Weight: 72 kg

DRUGS (1)
  1. ACIPHEX (RABEPRAZOLE) [Suspect]
     Indication: DUODENAL ULCER
     Route: 048
     Dates: start: 2001

REACTIONS (4)
  - Coeliac artery occlusion [Recovered/Resolved]
  - Loss of consciousness [Recovered/Resolved]
  - Transient ischaemic attack [Recovered/Resolved]
  - Colitis ulcerative [Not Recovered/Not Resolved]
